FAERS Safety Report 8623182-4 (Version None)
Quarter: 2012Q3

REPORT INFORMATION
  Report Type: 
  Country: None (occurrence: None)
  Receive Date: 20120827
  Receipt Date: 20120821
  Transmission Date: 20120928
  Serious: Yes (Hospitalization)
  Sender: FDA-Public Use
  Company Number: PHHY2012FR073220

PATIENT
  Age: 79 Year
  Sex: Female
  Weight: 56 kg

DRUGS (9)
  1. CALCIUM CARBONATE [Concomitant]
     Dosage: UNK
     Dates: start: 20110101
  2. ACETAMINOPHEN [Concomitant]
     Dates: start: 20110101, end: 20120101
  3. MORPHINE SULFATE [Concomitant]
     Dosage: UNK
     Dates: start: 20110101, end: 20110901
  4. ZOLEDRONOC ACID [Suspect]
     Route: 042
     Dates: start: 20110622
  5. MORPHINE [Concomitant]
     Dates: start: 20110101, end: 20110801
  6. ACETAMINOPHEN AND TRAMADOL HCL [Concomitant]
     Dates: start: 20110101, end: 20110901
  7. ENALAPRIL MALEATE [Concomitant]
     Dosage: UNK
     Dates: start: 20110101, end: 20111001
  8. FORTEO [Concomitant]
     Dates: start: 20110101
  9. THIOCOLCHICOSIDE [Concomitant]
     Dates: start: 20110101

REACTIONS (3)
  - FOOT DEFORMITY [None]
  - POSTOPERATIVE WOUND INFECTION [None]
  - ULCER [None]
